FAERS Safety Report 5033922-1 (Version None)
Quarter: 2006Q2

REPORT INFORMATION
  Report Type: 
  Country: None (occurrence: None)
  Receive Date: 20060623
  Receipt Date: 20060306
  Transmission Date: 20061013
  Serious: Yes (Death, Hospitalization)
  Sender: FDA-Public Use
  Company Number: HQWYE215308MAR06

PATIENT
  Sex: Male

DRUGS (9)
  1. ENBREL [Suspect]
     Indication: RHEUMATOID ARTHRITIS
     Route: 058
     Dates: start: 20051215, end: 20060304
  2. PREDNISOLONE [Suspect]
     Route: 048
     Dates: start: 20051215, end: 20060303
  3. AZULFIDINE [Concomitant]
     Route: 048
  4. ISCOTIN [Concomitant]
     Dosage: UNSPECIFIED DOSE
     Dates: start: 20051214, end: 20060302
  5. MAGNESIUM OXIDE [Concomitant]
     Dates: start: 20051215, end: 20060303
  6. IFENPRODIL [Concomitant]
     Dates: start: 20051215, end: 20060303
  7. GLIMEPIRIDE [Concomitant]
     Dates: start: 20051215, end: 20060303
  8. PYRIDOXAL PHOSPHATE [Concomitant]
     Dates: start: 20051215, end: 20060303
  9. ACTOS [Concomitant]
     Dates: start: 20051215, end: 20060303

REACTIONS (5)
  - BLOOD PRESSURE DECREASED [None]
  - CYANOSIS [None]
  - PNEUMONIA [None]
  - RESPIRATORY ACIDOSIS [None]
  - RESPIRATORY FAILURE [None]
